FAERS Safety Report 6611418-0 (Version None)
Quarter: 2010Q1

REPORT INFORMATION
  Report Type: 
  Country: None (occurrence: None)
  Receive Date: 20100218
  Receipt Date: 20091230
  Transmission Date: 20100710
  Serious: No
  Sender: FDA-Public Use
  Company Number: WAES 0912USA03752

PATIENT
  Age: 50 Year
  Sex: Female

DRUGS (4)
  1. ISENTRESS [Suspect]
     Dosage: PO
     Route: 048
     Dates: start: 20091202
  2. DILANTIN [Concomitant]
  3. INTELENCE [Concomitant]
  4. TRUVADA [Concomitant]

REACTIONS (2)
  - DIZZINESS [None]
  - GAIT DISTURBANCE [None]
